FAERS Safety Report 17196927 (Version 1)
Quarter: 2019Q4

REPORT INFORMATION
  Report Type: Spontaneous
  Country: US (occurrence: US)
  Receive Date: 20191224
  Receipt Date: 20191224
  Transmission Date: 20200122
  Serious: No
  Sender: FDA-Public Use
  Company Number: US-SA-2019SA347819

PATIENT
  Sex: Female

DRUGS (1)
  1. ELITEK [Suspect]
     Active Substance: RASBURICASE

REACTIONS (1)
  - Product dispensing error [Unknown]
